FAERS Safety Report 4334820-9 (Version None)
Quarter: 2004Q2

REPORT INFORMATION
  Report Type: 
  Country: None (occurrence: None)
  Receive Date: 20040407
  Receipt Date: 20040407
  Transmission Date: 20050107
  Serious: Yes (Other)
  Sender: FDA-Public Use
  Company Number: None

PATIENT
  Sex: Male
  Weight: 90.7194 kg

DRUGS (2)
  1. OLANZAPINE [Suspect]
     Indication: MOOD ALTERED
     Dosage: 5 MG ORAL , ONE DOSE -2.5 MG ORAL TWO DOSES
     Route: 048
     Dates: start: 20040326, end: 20040327
  2. OLANZAPINE [Suspect]
     Indication: MOOD ALTERED
     Dosage: 5 MG ORAL , ONE DOSE -2.5 MG ORAL TWO DOSES
     Route: 048
     Dates: start: 20040325

REACTIONS (24)
  - ABNORMAL FAECES [None]
  - BALANCE DISORDER [None]
  - BRADYPHRENIA [None]
  - CONSTIPATION [None]
  - DEPRESSED LEVEL OF CONSCIOUSNESS [None]
  - DISORIENTATION [None]
  - DIZZINESS [None]
  - DRUG EFFECT DECREASED [None]
  - DRY MOUTH [None]
  - DRY THROAT [None]
  - FATIGUE [None]
  - FEELING ABNORMAL [None]
  - IMPAIRED DRIVING ABILITY [None]
  - MEMORY IMPAIRMENT [None]
  - MOVEMENT DISORDER [None]
  - NASAL DISCOMFORT [None]
  - NASAL DRYNESS [None]
  - NIGHTMARE [None]
  - REBOUND EFFECT [None]
  - RHINORRHOEA [None]
  - SEDATION [None]
  - SNEEZING [None]
  - STUPOR [None]
  - THIRST [None]
